FAERS Safety Report 8987080 (Version 1)
Quarter: 2012Q4

REPORT INFORMATION
  Report Type: 
  Country: US (occurrence: US)
  Receive Date: 20121227
  Receipt Date: 20121227
  Transmission Date: 20130627
  Serious: Yes (Hospitalization, Other)
  Sender: FDA-Public Use
  Company Number: US-AMGEN-USASP2012083211

PATIENT
  Sex: Male

DRUGS (2)
  1. ENBREL [Suspect]
     Indication: PSORIATIC ARTHROPATHY
     Dosage: 50 mg, qwk
     Dates: start: 20090813, end: 2010
  2. METHOTREXATE [Concomitant]
     Dosage: UNK
     Dates: start: 2009, end: 2010

REACTIONS (6)
  - Gastrointestinal haemorrhage [Recovered/Resolved]
  - Benign pancreatic neoplasm [Recovered/Resolved]
  - Skin discolouration [Not Recovered/Not Resolved]
  - Vomiting [Recovered/Resolved]
  - Gait disturbance [Not Recovered/Not Resolved]
  - Skin plaque [Not Recovered/Not Resolved]
